FAERS Safety Report 6052293-5 (Version None)
Quarter: 2009Q1

REPORT INFORMATION
  Report Type: 
  Country: None (occurrence: None)
  Receive Date: 20090121
  Receipt Date: 20081216
  Transmission Date: 20090719
  Serious: Yes (Hospitalization, Disabling)
  Sender: FDA-Public Use
  Company Number: 2008S1022356

PATIENT
  Age: 48 Year
  Sex: Female

DRUGS (1)
  1. MIDODRINE HYDROCHLORIDE [Suspect]
     Indication: HYPOTENSION
     Dosage: 5 MG; DAILY;, 5 MG; TWICE A DAY;

REACTIONS (7)
  - DRY GANGRENE [None]
  - FOOT AMPUTATION [None]
  - INDURATION [None]
  - ISCHAEMIA [None]
  - LEG AMPUTATION [None]
  - PAIN IN EXTREMITY [None]
  - SKIN ULCER [None]
